FAERS Safety Report 24615965 (Version 1)
Quarter: 2024Q4

REPORT INFORMATION
  Report Type: Spontaneous
  Country: US (occurrence: US)
  Receive Date: 20241113
  Receipt Date: 20241113
  Transmission Date: 20250114
  Serious: No
  Sender: JOHNSON AND JOHNSON
  Company Number: US-JNJFOC-20241104591

PATIENT
  Sex: Male

DRUGS (1)
  1. ERLEADA [Suspect]
     Active Substance: APALUTAMIDE
     Indication: Product used for unknown indication
     Route: 048

REACTIONS (6)
  - Fibula fracture [Unknown]
  - Injury [Unknown]
  - Fall [Unknown]
  - Nerve compression [Unknown]
  - Chest pain [Unknown]
  - Hot flush [Unknown]

NARRATIVE: CASE EVENT DATE: 20241003
